FAERS Safety Report 6931643-9 (Version None)
Quarter: 2010Q3

REPORT INFORMATION
  Report Type: 
  Country: None (occurrence: None)
  Receive Date: 20100812
  Receipt Date: 20090702
  Transmission Date: 20110219
  Serious: No
  Sender: FDA-Public Use
  Company Number: 2009-00317

PATIENT
  Sex: Female

DRUGS (2)
  1. ZICAM COLD REMEDY GEL SWABS [Suspect]
     Dosage: Q 4 HRS X 3 DAYS; END OF MAY-2009-20 SWABS
     Dates: start: 20090501
  2. LEVOTHROID [Concomitant]

REACTIONS (2)
  - AGEUSIA [None]
  - ANOSMIA [None]
